FAERS Safety Report 9161462 (Version 1)
Quarter: 2012Q4

REPORT INFORMATION
  Report Type: 
  Country: US (occurrence: US)
  Receive Date: 20121227
  Receipt Date: 20121227
  Transmission Date: 20130627
  Serious: Yes (Other)
  Sender: FDA-Public Use
  Company Number: US-RB-048145-12

PATIENT
  Sex: Male

DRUGS (6)
  1. SUBOXONE TABLET [Suspect]
     Indication: DRUG DEPENDENCE
     Route: 064
     Dates: start: 2010, end: 20110404
  2. SUBOXONE TABLET [Suspect]
     Route: 063
     Dates: start: 2011
  3. WELLBUTRIN [Suspect]
     Indication: DEPRESSION
     Route: 064
     Dates: start: 2010, end: 20110404
  4. WELLBUTRIN [Suspect]
     Route: 063
     Dates: start: 2011
  5. NICOTINE [Suspect]
     Dosage: 2 piece a day
     Route: 064
     Dates: start: 2010, end: 20110404
  6. NICOTINE [Suspect]
     Indication: PRODUCT USED FOR UNKNOWN INDICATION
     Dosage: 2 piece a day
     Route: 063
     Dates: start: 2011

REACTIONS (3)
  - Cardiac murmur [Unknown]
  - Exposure during breast feeding [Recovered/Resolved]
  - Foetal exposure during pregnancy [Recovered/Resolved]
